FAERS Safety Report 14176895 (Version 1)
Quarter: 2017Q4

REPORT INFORMATION
  Report Type: Report from Study
  Country: CO (occurrence: CO)
  Receive Date: 20171110
  Receipt Date: 20171110
  Transmission Date: 20180321
  Serious: Yes (Hospitalization)
  Sender: FDA-Public Use
  Company Number: CO-UCBSA-2017044356

PATIENT
  Age: 3 Year
  Sex: Male

DRUGS (2)
  1. LACOSAMIDE. [Suspect]
     Active Substance: LACOSAMIDE
     Indication: EPILEPSY
     Dosage: 125 MG DAILY
     Route: 048
     Dates: start: 20170724, end: 2017
  2. LACOSAMIDE. [Suspect]
     Active Substance: LACOSAMIDE
     Dosage: 50 MG, 3X/DAY (TID)
     Route: 048
     Dates: start: 2017, end: 2017

REACTIONS (2)
  - Seizure [Not Recovered/Not Resolved]
  - Off label use [Unknown]

NARRATIVE: CASE EVENT DATE: 20170724
